FAERS Safety Report 4574653-1 (Version None)
Quarter: 2005Q1

REPORT INFORMATION
  Report Type: 
  Country: None (occurrence: None)
  Receive Date: 20050208
  Receipt Date: 20040625
  Transmission Date: 20050727
  Serious: No
  Sender: FDA-Public Use
  Company Number: US-GLAXOSMITHKLINE-A0516139A

PATIENT
  Age: 23 Year
  Sex: Female

DRUGS (2)
  1. PAXIL [Suspect]
     Indication: POST-TRAUMATIC STRESS DISORDER
     Dosage: 40MG PER DAY
     Route: 048
     Dates: start: 20030101, end: 20040620
  2. ALLERGY MEDICATION [Concomitant]

REACTIONS (5)
  - DIARRHOEA [None]
  - HYPERHIDROSIS [None]
  - NAUSEA [None]
  - PAIN [None]
  - VOMITING [None]
